FAERS Safety Report 5320527-8 (Version None)
Quarter: 2007Q2

REPORT INFORMATION
  Report Type: 
  Country: None (occurrence: None)
  Receive Date: 20070509
  Receipt Date: 20070501
  Transmission Date: 20071010
  Serious: Yes (Other)
  Sender: FDA-Public Use
  Company Number: US-PFIZER INC-2007034904

PATIENT

DRUGS (2)
  1. ZOLOFT [Suspect]
  2. ALCOHOL [Interacting]

REACTIONS (2)
  - DRUG INTERACTION [None]
  - HOMICIDE [None]
